FAERS Safety Report 5020802-0 (Version None)
Quarter: 2006Q2

REPORT INFORMATION
  Report Type: 
  Country: None (occurrence: None)
  Receive Date: 20060608
  Receipt Date: 20051222
  Transmission Date: 20061013
  Serious: Yes (Death, Other)
  Sender: FDA-Public Use
  Company Number: PHMT2005CA00859

PATIENT
  Age: 60 Year
  Sex: Female

DRUGS (31)
  1. RAMIPRIL [Concomitant]
     Dosage: 10 MG, QD
  2. PLAVIX [Concomitant]
     Dosage: 75 MG, QD
  3. ASPIRIN [Concomitant]
     Dosage: 81 MG, QD
  4. CELEXA [Concomitant]
     Dosage: 20 MG, QD
  5. CELEXA [Concomitant]
     Dosage: 40 MG, QD
  6. CLARITIN [Concomitant]
     Dosage: 10 MG, QD
  7. SIMVASTATIN [Concomitant]
     Dosage: 40 MG, QD
  8. GRAVOL TAB [Concomitant]
     Dosage: 50 IM/IV/PO, Q4H
  9. LACTULOSE [Concomitant]
     Dosage: 30 ML, QID PRN
  10. PREVACID [Concomitant]
     Dosage: 30 MG, QD
  11. MOM W/CASCARA [Concomitant]
     Dosage: 30 ML, BID PRN
  12. ATROVENT [Concomitant]
     Dosage: 4 PUFFS, QID
  13. SALBUTAMOL [Concomitant]
     Dosage: 2 PUFFS,  Q2H PRN
  14. UREA [Concomitant]
     Dosage: UNK, QD PRN
  15. DOMPERIDONE [Concomitant]
     Dosage: 10 MG, QID
  16. PERCOCET [Concomitant]
     Dosage: 1-2 TABLETS, Q4H PRN
  17. MORPHINE [Concomitant]
     Dosage: 10 TO 20 MG, Q4H PRN
     Route: 048
  18. PROCHLORPERAZINE [Concomitant]
     Dosage: 10 MG, PO/IM WITH MEALS
  19. ZOFRAN [Concomitant]
     Dosage: 8 MG, Q12H
  20. PROCHLORPERAZINE [Concomitant]
     Dosage: 10 MG, Q4H PRN
  21. HEPARIN [Concomitant]
     Dosage: 7500 UNITS, Q12H
     Route: 058
  22. MORPHINE [Concomitant]
     Dosage: 5 TO 7.5 MG, Q4H
     Route: 058
  23. CLOZARIL [Suspect]
     Indication: SCHIZOPHRENIA
     Dosage: 150 MG, QHS
     Route: 048
     Dates: start: 19980214, end: 20060101
  24. GLYBURIDE [Concomitant]
     Dosage: 10 MG, BID
  25. AVANDIA [Concomitant]
     Dosage: 4 MG, BID
  26. DEXAMETHASONE TAB [Concomitant]
     Dosage: 4 MG, BID
     Route: 048
  27. CARBOPLATIN [Suspect]
     Dosage: 529 MG
     Dates: start: 20060111
  28. CARBOPLATIN [Suspect]
     Dosage: 499 MG, ONCE/SINGLE
     Route: 042
     Dates: start: 20051213, end: 20051213
  29. ETOPOSIDE [Suspect]
     Dosage: 160 MG
     Dates: start: 20060111
  30. ETOPOSIDE [Suspect]
     Dosage: 160 MG, ONCE/SINGLE
     Route: 042
  31. NEUPOGEN [Concomitant]

REACTIONS (7)
  - AGRANULOCYTOSIS [None]
  - DRUG INTERACTION [None]
  - HAEMATOCRIT DECREASED [None]
  - LUNG CANCER METASTATIC [None]
  - PLATELET DISORDER [None]
  - THROMBOCYTOPENIA [None]
  - WHITE BLOOD CELL DISORDER [None]
